FAERS Safety Report 10444775 (Version 1)
Quarter: 2014Q3

REPORT INFORMATION
  Report Type: Other
  Country: SG (occurrence: SG)
  Receive Date: 20140910
  Receipt Date: 20140910
  Transmission Date: 20150326
  Serious: Yes (Death)
  Sender: FDA-Public Use
  Company Number: SG-ASTELLAS-2014US012245

PATIENT
  Age: 37 Year
  Sex: Male
  Weight: 100 kg

DRUGS (4)
  1. AMPHOTERICIN B, LIPOSOME [Suspect]
     Active Substance: AMPHOTERICIN B
     Indication: CANDIDA INFECTION
     Dosage: UNK, UNKNOWN FREQ.
     Route: 065
  2. ERAXIS [Suspect]
     Active Substance: ANIDULAFUNGIN
     Indication: ANTIFUNGAL PROPHYLAXIS
     Dosage: UNK, UNKNOWN FREQ.
     Route: 042
  3. TYGACIL [Suspect]
     Active Substance: TIGECYCLINE
     Indication: ANTIFUNGAL PROPHYLAXIS
     Dosage: UNK, UNKNOWN FREQ.
     Route: 065
  4. ZYVOX [Suspect]
     Active Substance: LINEZOLID
     Indication: ANTIFUNGAL PROPHYLAXIS
     Dosage: UNK, UNKNOWN FREQ.
     Route: 065

REACTIONS (2)
  - Candida infection [Fatal]
  - Drug ineffective [Fatal]

NARRATIVE: CASE EVENT DATE: 20100821
